FAERS Safety Report 7109782-1 (Version None)
Quarter: 2010Q4

REPORT INFORMATION
  Report Type: 
  Country: None (occurrence: None)
  Receive Date: 20101118
  Receipt Date: 20100811
  Transmission Date: 20110411
  Serious: Yes (Hospitalization)
  Sender: FDA-Public Use
  Company Number: US-RANBAXY-2010RR-39092

PATIENT
  Sex: Female

DRUGS (7)
  1. PREDNISOLONE [Suspect]
     Indication: PRODUCT USED FOR UNKNOWN INDICATION
     Dosage: 1 MG, UNK
     Route: 048
     Dates: start: 20021124, end: 20060612
  2. LEVAQUIN [Suspect]
     Indication: PNEUMONIA
     Dosage: UNK
     Route: 048
     Dates: start: 20070401
  3. LEVAQUIN [Suspect]
     Indication: LUNG INFECTION
  4. CIPROFLOXACIN [Suspect]
     Indication: ANTIBIOTIC THERAPY
  5. AVELOX [Suspect]
     Indication: PRODUCT USED FOR UNKNOWN INDICATION
  6. LEVOFLOXACIN [Suspect]
     Dosage: 500 MG, UNK
     Route: 048
  7. AUGMENTIN '125' [Concomitant]
     Dosage: UNK

REACTIONS (3)
  - DRUG INEFFECTIVE [None]
  - LIGAMENT INJURY [None]
  - TENDON RUPTURE [None]
